FAERS Safety Report 22196592 (Version 2)
Quarter: 2023Q2

REPORT INFORMATION
  Report Type: Report from Study
  Country: US (occurrence: US)
  Receive Date: 20230411
  Receipt Date: 20230421
  Transmission Date: 20230722
  Serious: Yes (Other)
  Sender: FDA-Public Use
  Company Number: US-SA-SAC20230410001015

PATIENT
  Age: 37 Year
  Sex: Male

DRUGS (1)
  1. DUPIXENT [Suspect]
     Active Substance: DUPILUMAB
     Indication: Eosinophilic oesophagitis
     Dosage: 300 MG, QW
     Route: 058

REACTIONS (9)
  - Tunnel vision [Unknown]
  - Feeling jittery [Unknown]
  - Agitation [Unknown]
  - Cholecystectomy [Unknown]
  - Paraesthesia [Unknown]
  - Irritability [Unknown]
  - COVID-19 [Recovered/Resolved]
  - Formication [Not Recovered/Not Resolved]
  - Chest discomfort [Recovering/Resolving]

NARRATIVE: CASE EVENT DATE: 20230101
